FAERS Safety Report 7636204-4 (Version None)
Quarter: 2011Q3

REPORT INFORMATION
  Report Type: 
  Country: None (occurrence: None)
  Receive Date: 20110726
  Receipt Date: 20110721
  Transmission Date: 20111222
  Serious: Yes (Life-Threatening, Hospitalization)
  Sender: FDA-Public Use
  Company Number: BR-ABBOTT-11P-020-0841029-00

PATIENT
  Sex: Female
  Weight: 71.5 kg

DRUGS (5)
  1. HALDOL [Concomitant]
     Indication: DEPRESSION
     Route: 048
  2. GARDENAL [Concomitant]
     Indication: EPILEPSY
  3. AKINETON [Suspect]
     Indication: COORDINATION ABNORMAL
     Route: 048
  4. TEGRETOL [Concomitant]
     Indication: EPILEPSY
     Route: 048
  5. DIAZEPAM [Concomitant]
     Indication: DEPRESSION
     Route: 048

REACTIONS (10)
  - HAEMATOCHEZIA [None]
  - CONFUSIONAL STATE [None]
  - COORDINATION ABNORMAL [None]
  - RASH [None]
  - PRURITUS [None]
  - SOMNOLENCE [None]
  - CONSTIPATION [None]
  - URINARY RETENTION [None]
  - SUICIDE ATTEMPT [None]
  - WEIGHT INCREASED [None]
